FAERS Safety Report 23026906 (Version 1)
Quarter: 2023Q4

REPORT INFORMATION
  Report Type: Spontaneous
  Country: US (occurrence: US)
  Receive Date: 20231004
  Receipt Date: 20231004
  Transmission Date: 20240109
  Serious: Yes (Other)
  Sender: FDA-Public Use
  Company Number: US-BRISTOL-MYERS SQUIBB COMPANY-2023-137929

PATIENT
  Age: 92 Year
  Sex: Female

DRUGS (1)
  1. REVLIMID [Suspect]
     Active Substance: LENALIDOMIDE
     Indication: Plasma cell myeloma
     Dosage: TAKE 1 CAPSULE BY MOUTH EVERY DAY FOR 7 DAYS ON THEN 14 DAYS OFF
     Route: 048
     Dates: start: 20220519

REACTIONS (3)
  - Lower respiratory tract infection [Recovering/Resolving]
  - Respiratory tract congestion [Recovering/Resolving]
  - Off label use [Unknown]
